FAERS Safety Report 23411656 (Version 1)
Quarter: 2024Q1

REPORT INFORMATION
  Report Type: Spontaneous
  Country: DE (occurrence: DE)
  Receive Date: 20240117
  Receipt Date: 20240117
  Transmission Date: 20240409
  Serious: Yes (Life-Threatening, Hospitalization)
  Sender: FDA-Public Use
  Company Number: DE-TEVA-VS-3140535

PATIENT
  Age: 37 Year

DRUGS (6)
  1. FENTANYL [Suspect]
     Active Substance: FENTANYL\FENTANYL CITRATE
     Indication: Induction of anaesthesia
     Route: 065
  2. NEOSTIGMINE [Suspect]
     Active Substance: NEOSTIGMINE
     Indication: Neuromuscular blockade reversal
     Route: 065
  3. ATROPINE [Suspect]
     Active Substance: ATROPINE\ATROPINE SULFATE
     Indication: Neuromuscular blockade reversal
     Route: 065
  4. ATRACURIUM [Suspect]
     Active Substance: ATRACURIUM
     Indication: Induction of anaesthesia
     Route: 065
  5. PROPOFOL [Suspect]
     Active Substance: PROPOFOL
     Indication: Induction and maintenance of anaesthesia
     Route: 065
  6. PROPOFOL [Suspect]
     Active Substance: PROPOFOL
     Indication: Induction and maintenance of anaesthesia
     Route: 065

REACTIONS (2)
  - Hyperthermia malignant [Recovering/Resolving]
  - Cardiac failure acute [Recovering/Resolving]
